FAERS Safety Report 5474986-0 (Version None)
Quarter: 2007Q4

REPORT INFORMATION
  Report Type: 
  Country: None (occurrence: None)
  Receive Date: 20071002
  Receipt Date: 20070919
  Transmission Date: 20080405
  Serious: Yes (Other)
  Sender: FDA-Public Use
  Company Number: US-ELI_LILLY_AND_COMPANY-US200709003906

PATIENT
  Age: 13 Year
  Sex: Male
  Weight: 54.421 kg

DRUGS (2)
  1. STRATTERA [Suspect]
     Indication: ATTENTION DEFICIT/HYPERACTIVITY DISORDER
     Dosage: 25 MG X 2 CAPSULES
     Dates: start: 20050721
  2. STRATTERA [Suspect]
     Dosage: 60 MG, DAILY (1/D)

REACTIONS (1)
  - BLOOD ALKALINE PHOSPHATASE INCREASED [None]
